FAERS Safety Report 20622880 (Version 1)
Quarter: 2022Q1

REPORT INFORMATION
  Report Type: Spontaneous
  Country: CN (occurrence: CN)
  Receive Date: 20220322
  Receipt Date: 20220322
  Transmission Date: 20220424
  Serious: Yes (Other)
  Sender: FDA-Public Use
  Company Number: CN-BAXTER-2022BAX006131

PATIENT
  Age: 51 Year
  Sex: Female
  Weight: 50 kg

DRUGS (5)
  1. CYCLOPHOSPHAMIDE [Suspect]
     Active Substance: CYCLOPHOSPHAMIDE
     Indication: Breast cancer female
     Dosage: CYCLOPHOSPHAMIDE 830 MG + NS 40 ML
     Route: 042
     Dates: start: 20220210, end: 20220210
  2. SODIUM CHLORIDE [Suspect]
     Active Substance: SODIUM CHLORIDE
     Indication: Medication dilution
     Dosage: CYCLOPHOSPHAMIDE 830 MG + NS 40 ML
     Route: 042
     Dates: start: 20220210, end: 20220210
  3. SODIUM CHLORIDE [Suspect]
     Active Substance: SODIUM CHLORIDE
     Dosage: EPIRUBICIN HYDROCHLORIDE 125 MG + NS 100 ML
     Route: 041
     Dates: start: 20220210, end: 20220210
  4. EPIRUBICIN HYDROCHLORIDE [Suspect]
     Active Substance: EPIRUBICIN HYDROCHLORIDE
     Indication: Breast cancer female
     Dosage: EPIRUBICIN HYDROCHLORIDE 125 MG + NS 100 ML
     Route: 041
     Dates: start: 20220210, end: 20220210
  5. MECAPEGFILGRASTIM [Suspect]
     Active Substance: MECAPEGFILGRASTIM
     Indication: Breast cancer female
     Dosage: ON THE THIRD DAY
     Route: 058

REACTIONS (2)
  - White blood cell count decreased [Recovered/Resolved]
  - Agranulocytosis [Recovered/Resolved]

NARRATIVE: CASE EVENT DATE: 20220217
